FAERS Safety Report 5024775-6 (Version None)
Quarter: 2006Q2

REPORT INFORMATION
  Report Type: 
  Country: None (occurrence: None)
  Receive Date: 20060427
  Receipt Date: 20050921
  Transmission Date: 20061013
  Serious: Yes (Hospitalization, Other)
  Sender: FDA-Public Use
  Company Number: 2005037416

PATIENT
  Sex: Female

DRUGS (1)
  1. ZITHROMAX [Suspect]
     Indication: ILL-DEFINED DISORDER
     Dosage: 1 D
     Dates: start: 20040801, end: 20050201

REACTIONS (3)
  - HYPERSENSITIVITY [None]
  - SKIN EXFOLIATION [None]
  - URTICARIA [None]
